FAERS Safety Report 4681522-5 (Version None)
Quarter: 2005Q2

REPORT INFORMATION
  Report Type: 
  Country: None (occurrence: None)
  Receive Date: 20050603
  Receipt Date: 20030116
  Transmission Date: 20051028
  Serious: Yes (Life-Threatening, Hospitalization)
  Sender: FDA-Public Use
  Company Number: PL-SANOFI-SYNTHELABO-D01200300111

PATIENT
  Sex: Male
  Weight: 105 kg

DRUGS (5)
  1. ALFUZOSIN [Suspect]
     Route: 048
     Dates: start: 20010711, end: 20030128
  2. DICLOFENAC SODIUM [Concomitant]
     Dosage: 25 MG
     Route: 065
     Dates: start: 19980401
  3. DICLOFENAC SODIUM [Concomitant]
     Dosage: 50 MG
     Route: 065
     Dates: start: 19880601
  4. NITROGLYCERIN [Concomitant]
     Dosage: UNK
     Route: 065
     Dates: start: 20020617, end: 20021211
  5. AMLODIPINE BESYLATE [Concomitant]
     Dosage: 5 MG
     Route: 065
     Dates: start: 20020617, end: 20021211

REACTIONS (1)
  - MYOCARDIAL INFARCTION [None]
